FAERS Safety Report 7205077-6 (Version None)
Quarter: 2010Q4

REPORT INFORMATION
  Report Type: 
  Country: None (occurrence: None)
  Receive Date: 20101230
  Receipt Date: 20101222
  Transmission Date: 20110411
  Serious: Yes (Other)
  Sender: FDA-Public Use
  Company Number: US-AMGEN-USASP2010010909

PATIENT

DRUGS (1)
  1. ENBREL [Suspect]
     Indication: PRODUCT USED FOR UNKNOWN INDICATION
     Dosage: 50 MG, QWK
     Dates: start: 20101101

REACTIONS (5)
  - ARTHRALGIA [None]
  - DRUG HYPERSENSITIVITY [None]
  - ERYTHEMA [None]
  - PRURITUS [None]
  - SWELLING [None]
